FAERS Safety Report 10088321 (Version 1)
Quarter: 2014Q2

REPORT INFORMATION
  Report Type: Spontaneous
  Country: AT (occurrence: AT)
  Receive Date: 20140421
  Receipt Date: 20140421
  Transmission Date: 20141212
  Serious: Yes (Hospitalization)
  Sender: FDA-Public Use
  Company Number: AT-009507513-1404AUT009868

PATIENT
  Age: 24 Year
  Sex: Male

DRUGS (4)
  1. BETAMETHASONE DIPROPIONATE [Suspect]
     Indication: PSORIASIS
     Dosage: DAILY WHOLEBODY APPLICATION
     Route: 061
  2. ACITRETIN [Concomitant]
     Indication: PSORIASIS
  3. CORTICOSTEROIDS (UNSPECIFIED) [Concomitant]
     Indication: PSORIASIS
     Route: 061
  4. METHOTREXATE [Concomitant]
     Indication: PSORIASIS

REACTIONS (3)
  - Osteopenia [Unknown]
  - Secondary adrenocortical insufficiency [Unknown]
  - Cushing^s syndrome [Unknown]
